FAERS Safety Report 9028731 (Version 1)
Quarter: 2013Q1

REPORT INFORMATION
  Report Type: Spontaneous
  Country: FR (occurrence: FR)
  Receive Date: 20130124
  Receipt Date: 20130124
  Transmission Date: 20140127
  Serious: Yes (Hospitalization)
  Sender: FDA-Public Use
  Company Number: FR-SANOFI-AVENTIS-2013SA004384

PATIENT
  Age: 86 Year
  Sex: Female

DRUGS (14)
  1. LASILIX [Suspect]
     Indication: CARDIAC FAILURE
     Dosage: STRENGTH: 100 MG
     Route: 048
  2. LASILIX [Suspect]
     Indication: CARDIAC FAILURE
     Dosage: STRENGTH: 100 MG
     Route: 048
     Dates: start: 20120716
  3. KAYEXALATE [Suspect]
     Indication: HYPERKALAEMIA
     Dosage: POWDER FOR ORAL AND RECTAL SUSPENSION
     Route: 048
     Dates: start: 20120607, end: 20120724
  4. UVEDOSE [Concomitant]
     Dosage: FREQUENCY: 1 VIAL EVERY 3 MONTHS
     Route: 048
  5. AERIUS [Concomitant]
     Route: 048
  6. PERINDOPRIL [Concomitant]
     Indication: HYPERTENSION
     Route: 048
  7. XANAX [Concomitant]
     Route: 048
  8. FEBUXOSTAT [Concomitant]
     Route: 048
  9. INEXIUM [Concomitant]
     Route: 048
  10. DOLIPRANE [Concomitant]
     Indication: PAIN
     Route: 048
  11. FERROUS SULFATE [Concomitant]
     Route: 048
  12. AUGMENTIN [Concomitant]
     Indication: LUNG DISORDER
     Dosage: STRENGTH: 50 MG/125 MG
     Route: 048
     Dates: start: 20120719
  13. LAMALINE [Concomitant]
     Indication: PAIN
     Route: 048
     Dates: start: 20120719
  14. ESBERIVEN FORTE [Concomitant]
     Route: 048

REACTIONS (2)
  - Ventricular extrasystoles [Recovered/Resolved]
  - Hypokalaemia [Recovered/Resolved]
